FAERS Safety Report 6949710-2 (Version None)
Quarter: 2010Q3

REPORT INFORMATION
  Report Type: 
  Country: None (occurrence: None)
  Receive Date: 20100828
  Receipt Date: 20100107
  Transmission Date: 20110219
  Serious: No
  Sender: FDA-Public Use
  Company Number: US-ABBOTT-10P-163-0618880-00

PATIENT
  Sex: Male
  Weight: 65.376 kg

DRUGS (15)
  1. NIASPAN [Suspect]
     Indication: BLOOD TRIGLYCERIDES INCREASED
     Dates: start: 20090101
  2. NIASPAN [Suspect]
     Indication: BLOOD CHOLESTEROL INCREASED
  3. JANUMET [Concomitant]
     Indication: DIABETES MELLITUS
     Dosage: 500/1000 MG
  4. PROSCAR [Concomitant]
     Indication: PROSTATOMEGALY
  5. GLIMEPIRIDE [Concomitant]
     Indication: DIABETES MELLITUS
  6. REGLAN [Concomitant]
     Indication: INTESTINAL FUNCTIONAL DISORDER
  7. LOVAZA [Concomitant]
     Indication: PRODUCT USED FOR UNKNOWN INDICATION
  8. COUMADIN [Concomitant]
     Indication: ANTICOAGULANT THERAPY
  9. ACTOS [Concomitant]
     Indication: DIABETES MELLITUS
  10. NEXIUM [Concomitant]
     Indication: GASTROOESOPHAGEAL REFLUX DISEASE
  11. ZOCOR [Concomitant]
     Indication: BLOOD CHOLESTEROL INCREASED
  12. FLOMAX [Concomitant]
     Indication: PROSTATOMEGALY
  13. CENTRUM SILVER [Concomitant]
     Indication: PRODUCT USED FOR UNKNOWN INDICATION
  14. VITAMIN B-12 [Concomitant]
     Indication: PRODUCT USED FOR UNKNOWN INDICATION
  15. ASCORBIC ACID [Concomitant]
     Indication: PRODUCT USED FOR UNKNOWN INDICATION

REACTIONS (1)
  - PRURITUS [None]
